FAERS Safety Report 16017013 (Version 3)
Quarter: 2019Q3

REPORT INFORMATION
  Report Type: Spontaneous
  Country: US (occurrence: US)
  Receive Date: 20190228
  Receipt Date: 20190717
  Transmission Date: 20191004
  Serious: Yes (Other)
  Sender: FDA-Public Use
  Company Number: US-BAYER-2019-036383

PATIENT
  Sex: Female

DRUGS (2)
  1. MIRENA [Suspect]
     Active Substance: LEVONORGESTREL
     Indication: CONTRACEPTION
     Dosage: 20 MCG/24HR, CONT
     Route: 015
     Dates: start: 201506
  2. MIRENA [Suspect]
     Active Substance: LEVONORGESTREL
     Indication: CONTRACEPTION

REACTIONS (10)
  - Uterine cervical pain [None]
  - Complication of device removal [None]
  - Complication of device removal [Not Recovered/Not Resolved]
  - Fatigue [None]
  - Procedural pain [None]
  - Abdominal pain [None]
  - Procedural haemorrhage [None]
  - Headache [None]
  - Device expulsion [None]
  - Asthenia [None]
